FAERS Safety Report 15083724 (Version 1)
Quarter: 2018Q2

REPORT INFORMATION
  Report Type: Spontaneous
  Country: GR (occurrence: GR)
  Receive Date: 20180628
  Receipt Date: 20180628
  Transmission Date: 20180711
  Serious: Yes (Other)
  Sender: FDA-Public Use
  Company Number: GR-MYLANLABS-2018M1045604

PATIENT
  Age: 68 Year
  Sex: Female

DRUGS (1)
  1. MYLAN-CIPROFLOXACIN [Suspect]
     Active Substance: CIPROFLOXACIN
     Indication: URINARY TRACT INFECTION
     Dosage: UNK

REACTIONS (2)
  - Clostridium difficile infection [Unknown]
  - Diarrhoea [Unknown]
